FAERS Safety Report 21064058 (Version 1)
Quarter: 2022Q3

REPORT INFORMATION
  Report Type: Spontaneous
  Country: RO (occurrence: RO)
  Receive Date: 20220711
  Receipt Date: 20220711
  Transmission Date: 20221026
  Serious: Yes (Hospitalization, Other)
  Sender: FDA-Public Use
  Company Number: RO-Accord-26845

PATIENT
  Age: 55 Year
  Sex: Female

DRUGS (3)
  1. FLUOROURACIL [Suspect]
     Active Substance: FLUOROURACIL
     Indication: Colon cancer
     Dosage: 5-FLUOROURACIL (5-FU) 400 MG/M2 I.V. BOLUS (DAY 1) + 5-FU 2400 MG/M2- 46-H INFUSION (DAYS 1 AND 2)
  2. LEUCOVORIN [Concomitant]
     Active Substance: LEUCOVORIN
     Indication: Colon cancer
     Dosage: 400 MG/ M2 (DAY 1)
  3. OXALIPLATIN [Concomitant]
     Active Substance: OXALIPLATIN
     Indication: Colon cancer
     Dosage: 85 MG/M2 (DAY 1)

REACTIONS (1)
  - Arteriospasm coronary [Recovered/Resolved]
